FAERS Safety Report 9637497 (Version 1)
Quarter: 2013Q4

REPORT INFORMATION
  Report Type: Spontaneous
  Country: GB (occurrence: GB)
  Receive Date: 20131022
  Receipt Date: 20131022
  Transmission Date: 20140711
  Serious: Yes (Hospitalization, Other)
  Sender: FDA-Public Use
  Company Number: GB-JNJFOC-20131011824

PATIENT
  Age: 52 Year
  Sex: 0
  Weight: 150 kg

DRUGS (10)
  1. XARELTO [Suspect]
     Indication: PROPHYLAXIS
     Route: 048
     Dates: start: 20130301, end: 20131001
  2. PARACETAMOL [Concomitant]
     Route: 065
  3. PIROXICAM [Concomitant]
     Route: 065
  4. SIMVASTATIN [Concomitant]
     Route: 065
  5. CODEINE [Concomitant]
     Route: 065
  6. LEVETIRACETAM [Concomitant]
     Route: 065
  7. BISOPROLOL [Concomitant]
     Route: 065
  8. SITAGLIPTIN [Concomitant]
     Route: 065
  9. TEMAZEPAM [Concomitant]
     Route: 065
  10. CLOPIDOGREL [Concomitant]
     Route: 065

REACTIONS (2)
  - Cerebral haemorrhage [Recovering/Resolving]
  - Speech disorder [Unknown]
